FAERS Safety Report 18696039 (Version 1)
Quarter: 2021Q1

REPORT INFORMATION
  Report Type: Report from Study
  Country: US (occurrence: US)
  Receive Date: 20210104
  Receipt Date: 20210104
  Transmission Date: 20210419
  Serious: Yes (Other)
  Sender: FDA-Public Use
  Company Number: US-JAZZ-2019-US-010972

PATIENT
  Sex: Female
  Weight: 58.96 kg

DRUGS (41)
  1. XYREM [Suspect]
     Active Substance: SODIUM OXYBATE
     Dosage: DOSE ADJUSTMENT
     Route: 048
     Dates: start: 201903, end: 201903
  2. FINACEA [Concomitant]
     Active Substance: AZELAIC ACID
  3. PARACETAMOL [Concomitant]
     Active Substance: ACETAMINOPHEN
  4. PIRBUTEROL ACETATE [Concomitant]
     Active Substance: PIRBUTEROL ACETATE
  5. CONCERTA [Concomitant]
     Active Substance: METHYLPHENIDATE HYDROCHLORIDE
  6. DIGESTIVE ENZYME [Concomitant]
     Active Substance: UNSPECIFIED INGREDIENT
  7. RESTASIS [Concomitant]
     Active Substance: CYCLOSPORINE
  8. LEXAPRO [Concomitant]
     Active Substance: ESCITALOPRAM OXALATE
  9. MIRALAX [Concomitant]
     Active Substance: POLYETHYLENE GLYCOL 3350
  10. XYREM [Suspect]
     Active Substance: SODIUM OXYBATE
     Indication: NARCOLEPSY
     Dosage: 3 G, BID
     Route: 048
     Dates: start: 201403, end: 201404
  11. XYREM [Suspect]
     Active Substance: SODIUM OXYBATE
     Indication: CATAPLEXY
     Dosage: 2 G, BID
     Route: 048
     Dates: start: 201903, end: 201903
  12. PATANASE [Concomitant]
     Active Substance: OLOPATADINE HYDROCHLORIDE
  13. ACETYLCARNITINE [Concomitant]
     Active Substance: ACETYLCARNITINE
  14. FISH OIL [Concomitant]
     Active Substance: FISH OIL
  15. IBUPROFEN. [Concomitant]
     Active Substance: IBUPROFEN
  16. MELATONIN [Concomitant]
     Active Substance: MELATONIN
  17. PEPPERMINT OIL [Concomitant]
     Active Substance: PEPPERMINT OIL
  18. ERGOCALCIFEROL. [Concomitant]
     Active Substance: ERGOCALCIFEROL
  19. PROGESTERONE. [Concomitant]
     Active Substance: PROGESTERONE
  20. CURCUMA LONGA [Concomitant]
     Active Substance: HERBALS\TURMERIC
  21. PATADAY [Concomitant]
     Active Substance: OLOPATADINE HYDROCHLORIDE
  22. LINZESS [Concomitant]
     Active Substance: LINACLOTIDE
  23. BACLOFEN. [Concomitant]
     Active Substance: BACLOFEN
  24. MEDIUM?CHAIN TRIGLYCERIDES [Concomitant]
     Active Substance: MEDIUM-CHAIN TRIGLYCERIDES
  25. XYREM [Suspect]
     Active Substance: SODIUM OXYBATE
     Dosage: 3.5 G, BID
     Route: 048
     Dates: start: 201903
  26. ONDANSETRON [Concomitant]
     Active Substance: ONDANSETRON
  27. COENZYME Q10 [Concomitant]
     Active Substance: DIETARY SUPPLEMENT\UBIDECARENONE
  28. AZELASTINE. [Concomitant]
     Active Substance: AZELASTINE HYDROCHLORIDE
  29. CITRULLINE [Concomitant]
     Active Substance: CITRULLINE
  30. ESTROGEN [Concomitant]
     Active Substance: ESTROGENS
  31. ZANTAC [Concomitant]
     Active Substance: RANITIDINE HYDROCHLORIDE
  32. MAGNESIUM GLUCONATE [Concomitant]
     Active Substance: MAGNESIUM GLUCONATE
  33. ARMODAFINIL. [Concomitant]
     Active Substance: ARMODAFINIL
  34. ALLEGRA ALLERGY [Concomitant]
     Active Substance: FEXOFENADINE HYDROCHLORIDE
  35. VITAMIN B COMPLEX [Concomitant]
     Active Substance: CYANOCOBALAMIN\DEXPANTHENOL\NIACINAMIDE\PYRIDOXINE HYDROCHLORIDE\RIBOFLAVIN 5^-PHOSPHATE SODIUM\THIAMINE HYDROCHLORIDE\VITAMIN B COMPLEX
  36. ASCORBIC ACID. [Concomitant]
     Active Substance: ASCORBIC ACID
  37. GABAPENTIN. [Concomitant]
     Active Substance: GABAPENTIN
  38. FLUTICASONE PROPIONATE. [Concomitant]
     Active Substance: FLUTICASONE PROPIONATE
  39. SYMBICORT [Concomitant]
     Active Substance: BUDESONIDE\FORMOTEROL FUMARATE DIHYDRATE
  40. DOXYCYCLINE HYCLATE. [Concomitant]
     Active Substance: DOXYCYCLINE HYCLATE
  41. QUERCETIN [Concomitant]
     Active Substance: QUERCETIN

REACTIONS (6)
  - Dizziness [Not Recovered/Not Resolved]
  - Peripheral swelling [Not Recovered/Not Resolved]
  - Joint swelling [Not Recovered/Not Resolved]
  - Fluid retention [Unknown]
  - Blood pressure increased [Recovered/Resolved]
  - Tinnitus [Unknown]
